FAERS Safety Report 5206951-2 (Version None)
Quarter: 2007Q1

REPORT INFORMATION
  Report Type: 
  Country: None (occurrence: None)
  Receive Date: 20070112
  Receipt Date: 20070103
  Transmission Date: 20070707
  Serious: Yes (Disabling)
  Sender: FDA-Public Use
  Company Number: PHBS2007CH00454

PATIENT
  Age: 83 Year
  Sex: Female

DRUGS (11)
  1. AREDIA [Suspect]
     Indication: MULTIPLE MYELOMA
     Dosage: 90 MG, PER MONTH
     Route: 042
     Dates: start: 20011101, end: 20030521
  2. PREDNISONE TAB [Suspect]
     Indication: MULTIPLE MYELOMA
     Dosage: 100 MG, PER DAY ON DAY 1-4 EVERY MONTH
     Route: 048
     Dates: start: 20010129, end: 20011227
  3. EPREX [Concomitant]
     Indication: MULTIPLE MYELOMA
     Dosage: 3000 IU, PER WEEK
     Route: 058
     Dates: start: 20061124
  4. ZOMETA [Suspect]
     Indication: MULTIPLE MYELOMA
     Dosage: 3 MG, PER MONTH
     Route: 042
     Dates: start: 20030601, end: 20060601
  5. ZOMETA [Suspect]
     Dosage: 2 MG, PER MONTH
     Route: 042
     Dates: start: 20060701, end: 20060901
  6. DEXAMETHASONE [Suspect]
     Indication: MULTIPLE MYELOMA
     Dosage: 40 MG, PER DAY ON DAY 1-4 EVERY MONTH
     Route: 065
     Dates: start: 20031031, end: 20040317
  7. DEXAMETHASONE [Suspect]
     Dosage: 40 MG, PER DAY ON DAY 1-4 EVERY MONTH
     Route: 065
     Dates: start: 20050826, end: 20060217
  8. DEXAMETHASONE [Suspect]
     Dosage: 40 MG, PER DAY ON DAY 1-4 EVERY MONTH
     Route: 065
     Dates: start: 20061124
  9. MELPHALAN [Concomitant]
     Indication: MULTIPLE MYELOMA
     Dosage: 4 DOSES/MONTH
     Route: 065
     Dates: start: 20010129, end: 20011227
  10. THALIDOMIDE [Concomitant]
     Indication: MULTIPLE MYELOMA
     Dosage: 100 MG/D
     Route: 065
     Dates: start: 20060928, end: 20061027
  11. THALIDOMIDE [Concomitant]
     Dosage: 50 MG/D
     Route: 065
     Dates: start: 20061103, end: 20061123

REACTIONS (1)
  - OSTEONECROSIS [None]
